FAERS Safety Report 20124810 (Version 1)
Quarter: 2021Q4

REPORT INFORMATION
  Report Type: Spontaneous
  Country: US (occurrence: None)
  Receive Date: 20211126
  Receipt Date: 20211126
  Transmission Date: 20220303
  Serious: Yes (Hospitalization)
  Sender: FDA-Public Use
  Company Number: None

PATIENT
  Age: 70 Year
  Sex: Male
  Weight: 86 kg

DRUGS (1)
  1. IODIXANOL [Suspect]
     Active Substance: IODIXANOL
     Indication: Computerised tomogram head
     Dates: start: 20211020, end: 20211020

REACTIONS (1)
  - Renal tubular necrosis [None]

NARRATIVE: CASE EVENT DATE: 20211024
